FAERS Safety Report 20489503 (Version 1)
Quarter: 2022Q1

REPORT INFORMATION
  Report Type: Spontaneous
  Country: AT (occurrence: AT)
  Receive Date: 20220218
  Receipt Date: 20220218
  Transmission Date: 20220423
  Serious: Yes (Other)
  Sender: FDA-Public Use
  Company Number: None

PATIENT
  Age: 90 Year
  Sex: Female

DRUGS (1)
  1. UNASYN [Suspect]
     Active Substance: AMPICILLIN SODIUM\SULBACTAM SODIUM
     Indication: Infection
     Dosage: UNK
     Dates: start: 20211206, end: 20211206

REACTIONS (2)
  - Type IV hypersensitivity reaction [Unknown]
  - Fixed eruption [Unknown]

NARRATIVE: CASE EVENT DATE: 20211206
